FAERS Safety Report 14354963 (Version 1)
Quarter: 2018Q1

REPORT INFORMATION
  Report Type: Spontaneous
  Country: US (occurrence: US)
  Receive Date: 20180104
  Receipt Date: 20180104
  Transmission Date: 20180509
  Serious: Yes (Other)
  Sender: FDA-Public Use
  Company Number: None

PATIENT
  Age: 35 Year
  Sex: Female
  Weight: 69.75 kg

DRUGS (5)
  1. DACARBAZINE. [Concomitant]
     Active Substance: DACARBAZINE
  2. VINBLASTIN [Concomitant]
     Active Substance: VINBLASTINE
  3. DOXORUBICIN [Concomitant]
     Active Substance: DOXORUBICIN
  4. BLEOMYCIN [Concomitant]
     Active Substance: BLEOMYCIN SULFATE
  5. VARUBI [Suspect]
     Active Substance: ROLAPITANT
     Indication: ANTIEMETIC SUPPORTIVE CARE
     Dosage: ?          OTHER FREQUENCY:1;?
     Route: 042

REACTIONS (5)
  - Flushing [None]
  - Hyperhidrosis [None]
  - Nausea [None]
  - Vomiting [None]
  - Therapy cessation [None]

NARRATIVE: CASE EVENT DATE: 20171228
